FAERS Safety Report 7644769-1 (Version None)
Quarter: 2011Q3

REPORT INFORMATION
  Report Type: 
  Country: None (occurrence: None)
  Receive Date: 20110729
  Receipt Date: 20110719
  Transmission Date: 20111222
  Serious: Yes (Hospitalization, Disabling, Other)
  Sender: FDA-Public Use
  Company Number: US-ASTRAZENECA-2011SE14054

PATIENT
  Age: 41 Year
  Sex: Female

DRUGS (15)
  1. NEXIUM [Suspect]
     Indication: GASTROOESOPHAGEAL REFLUX DISEASE
     Route: 048
  2. SEROQUEL [Suspect]
     Indication: BIPOLAR DISORDER
     Route: 048
     Dates: start: 20101101
  3. SEROQUEL [Suspect]
     Indication: SLEEP APNOEA SYNDROME
     Route: 048
     Dates: start: 20101101
  4. SEROQUEL [Suspect]
     Route: 048
  5. SEROQUEL [Suspect]
     Route: 048
  6. LISINOPRIL [Concomitant]
  7. NEURONTIN [Concomitant]
  8. SEROQUEL [Suspect]
     Route: 048
     Dates: end: 20101101
  9. SEROQUEL [Suspect]
     Route: 048
     Dates: start: 20090702
  10. SEROQUEL [Suspect]
     Route: 048
     Dates: end: 20101101
  11. SEROQUEL [Suspect]
     Route: 048
     Dates: start: 20090702
  12. POTASSIUM [Concomitant]
  13. CUBICIN [Concomitant]
     Indication: THROMBOSIS PROPHYLAXIS
  14. EFFEXOR [Concomitant]
  15. NEXIUM [Suspect]
     Route: 048

REACTIONS (14)
  - GOUT [None]
  - MUSCULAR WEAKNESS [None]
  - HIP ARTHROPLASTY [None]
  - FALL [None]
  - HIP SURGERY [None]
  - NEUROPATHY PERIPHERAL [None]
  - IRRITABILITY [None]
  - WALKING AID USER [None]
  - ANGER [None]
  - OFF LABEL USE [None]
  - OSTEONECROSIS [None]
  - SYSTEMIC LUPUS ERYTHEMATOSUS [None]
  - MUSCULOSKELETAL DISCOMFORT [None]
  - AGITATION [None]
